FAERS Safety Report 14685181 (Version 1)
Quarter: 2018Q1

REPORT INFORMATION
  Report Type: Spontaneous
  Country: KW (occurrence: KW)
  Receive Date: 20180327
  Receipt Date: 20180327
  Transmission Date: 20180509
  Serious: Yes (Other)
  Sender: FDA-Public Use
  Company Number: PHHY2018KW047725

PATIENT
  Sex: Male

DRUGS (5)
  1. TACROLIMUS. [Suspect]
     Active Substance: TACROLIMUS
     Indication: PROPHYLAXIS AGAINST GRAFT VERSUS HOST DISEASE
     Dosage: UNK
     Route: 065
  2. PREDNISOLONE. [Suspect]
     Active Substance: PREDNISOLONE
     Indication: PROPHYLAXIS AGAINST GRAFT VERSUS HOST DISEASE
     Route: 065
  3. FLUDARABINE [Concomitant]
     Active Substance: FLUDARABINE PHOSPHATE
     Indication: FAMILIAL HAEMOPHAGOCYTIC LYMPHOHISTIOCYTOSIS
     Dosage: UNK
     Route: 005
  4. IMATINIB [Suspect]
     Active Substance: IMATINIB
     Indication: GRAFT VERSUS HOST DISEASE IN SKIN
     Route: 065
  5. METHOTREXATE. [Concomitant]
     Active Substance: METHOTREXATE
     Indication: FAMILIAL HAEMOPHAGOCYTIC LYMPHOHISTIOCYTOSIS
     Dosage: UNK
     Route: 065

REACTIONS (12)
  - Dyshidrotic eczema [Unknown]
  - Lichen planus [Not Recovered/Not Resolved]
  - Paronychia [Unknown]
  - Graft versus host disease in gastrointestinal tract [Unknown]
  - Graft versus host disease in skin [Unknown]
  - Eczema [Unknown]
  - Oral mucosal erythema [Unknown]
  - Palmar-plantar erythrodysaesthesia syndrome [Unknown]
  - Diffuse alopecia [Unknown]
  - Graft versus host disease in liver [Unknown]
  - Scleroderma-like reaction [Not Recovered/Not Resolved]
  - Product use in unapproved indication [Unknown]
